FAERS Safety Report 13401117 (Version 1)
Quarter: 2017Q2

REPORT INFORMATION
  Report Type: Spontaneous
  Country: US (occurrence: US)
  Receive Date: 20170404
  Receipt Date: 20170404
  Transmission Date: 20170830
  Serious: No
  Sender: FDA-Public Use
  Company Number: US-AVEDRO-AVE-2016-0009-AE

PATIENT
  Age: 15 Year
  Sex: Male
  Weight: 49.94 kg

DRUGS (7)
  1. PHOTREXA VISCOUS [Suspect]
     Active Substance: RIBOFLAVIN 5^-PHOSPHATE SODIUM
     Indication: KERATOCONUS
     Dosage: EVERY 2 MINUTES FOR 30 MINUTES
     Route: 047
     Dates: start: 20160926
  2. PHOTREXA [Suspect]
     Active Substance: RIBOFLAVIN 5^-PHOSPHATE SODIUM
     Indication: KERATOCONUS
     Route: 047
     Dates: start: 20160926
  3. LOTEMAX [Concomitant]
     Active Substance: LOTEPREDNOL ETABONATE
     Indication: INFLAMMATION
     Dosage: 3 TIMES PER DAY
     Dates: start: 20160926, end: 20161003
  4. KXL SYSTEM [Suspect]
     Active Substance: DEVICE
     Indication: KERATOCONUS
     Route: 047
     Dates: start: 20160926
  5. ALCOHOL. [Concomitant]
     Active Substance: ALCOHOL
     Indication: DEBRIDEMENT
     Dates: start: 20160926
  6. BESIVANCE [Concomitant]
     Active Substance: BESIFLOXACIN
     Indication: INFECTION PROPHYLAXIS
     Dosage: 3 TIMES PER DAY
     Dates: start: 20160926, end: 20161007
  7. PROLENSA [Concomitant]
     Active Substance: BROMFENAC SODIUM
     Indication: PAIN MANAGEMENT
     Dosage: DAILY
     Dates: start: 20160926, end: 20161007

REACTIONS (2)
  - Corneal opacity [Recovered/Resolved]
  - Corneal oedema [Recovered/Resolved]

NARRATIVE: CASE EVENT DATE: 20160926
